FAERS Safety Report 6500097-9 (Version None)
Quarter: 2009Q4

REPORT INFORMATION
  Report Type: 
  Country: None (occurrence: None)
  Receive Date: 20091216
  Receipt Date: 20091204
  Transmission Date: 20100525
  Serious: Yes (Hospitalization)
  Sender: FDA-Public Use
  Company Number: US-CELGENEUS-163-21880-09120487

PATIENT
  Sex: Female

DRUGS (1)
  1. REVLIMID [Suspect]
     Indication: DRUG USE FOR UNKNOWN INDICATION
     Route: 048
     Dates: start: 20090416, end: 20091101

REACTIONS (5)
  - BACK DISORDER [None]
  - DIARRHOEA [None]
  - FAECAL INCONTINENCE [None]
  - MALAISE [None]
  - PRURITUS [None]
